FAERS Safety Report 6816672-8 (Version None)
Quarter: 2010Q3

REPORT INFORMATION
  Report Type: 
  Country: None (occurrence: None)
  Receive Date: 20100706
  Receipt Date: 20100625
  Transmission Date: 20110219
  Serious: Yes (Other)
  Sender: FDA-Public Use
  Company Number: BR-MEDIMMUNE-MEDI-0011377

PATIENT
  Sex: Male
  Weight: 5.8 kg

DRUGS (9)
  1. SYNAGIS [Suspect]
     Indication: CARDIOMYOPATHY
     Route: 030
     Dates: start: 20100428
  2. CAPTOPRIL [Concomitant]
     Route: 048
  3. LAUDONE [Concomitant]
     Route: 048
  4. FUROSEMIDE [Concomitant]
     Route: 048
     Dates: end: 20100506
  5. SODIUM CHLORIDE [Concomitant]
     Route: 045
  6. VITAMIN AD [Concomitant]
     Indication: VITAMIN SUPPLEMENTATION
  7. FERRIC SULFATE [Concomitant]
     Dates: start: 20100615
  8. BEROTEC [Concomitant]
     Indication: NASAL CONGESTION
  9. SODIUM CHLORIDE [Concomitant]
     Indication: NASAL CONGESTION

REACTIONS (5)
  - BRONCHOPNEUMONIA [None]
  - INFLUENZA [None]
  - NASOPHARYNGITIS [None]
  - WEIGHT DECREASED [None]
  - WHEEZING [None]
